FAERS Safety Report 16780236 (Version 2)
Quarter: 2019Q4

REPORT INFORMATION
  Report Type: Report from Study
  Country: US (occurrence: US)
  Receive Date: 20190906
  Receipt Date: 20191009
  Transmission Date: 20200122
  Serious: No
  Sender: FDA-Public Use
  Company Number: US-EMD SERONO-9103445

PATIENT
  Sex: Male

DRUGS (1)
  1. MAVENCLAD [Suspect]
     Active Substance: CLADRIBINE
     Indication: MULTIPLE SCLEROSIS
     Dosage: FIRST WEEK THERAPY: TWO TABLETS (EACH OF 10 MG) ON DAYS 1 TO 5.
     Route: 048
     Dates: start: 20190625

REACTIONS (7)
  - Chromaturia [Recovered/Resolved]
  - Urine flow decreased [Unknown]
  - Skin exfoliation [Unknown]
  - Groin pain [Unknown]
  - Erythema [Unknown]
  - Back pain [Unknown]
  - Gastrointestinal disorder [Unknown]
